FAERS Safety Report 9727624 (Version 3)
Quarter: 2014Q1

REPORT INFORMATION
  Report Type: Spontaneous
  Country: FR (occurrence: FR)
  Receive Date: 20131203
  Receipt Date: 20140220
  Transmission Date: 20141002
  Serious: Yes (Hospitalization, Other)
  Sender: FDA-Public Use
  Company Number: FR-ABBVIE-11P-056-0717804-00

PATIENT
  Sex: Female

DRUGS (1)
  1. DEPAKINE [Suspect]
     Indication: MATERNAL EXPOSURE TIMING UNSPECIFIED
     Route: 064

REACTIONS (9)
  - Mild mental retardation [Unknown]
  - Autism [Unknown]
  - Foetal exposure during pregnancy [Unknown]
  - Speech disorder [Unknown]
  - Abnormal behaviour [Unknown]
  - Autism spectrum disorder [Unknown]
  - Psychomotor skills impaired [Unknown]
  - Childhood psychosis [Unknown]
  - Abnormal behaviour [Unknown]
